FAERS Safety Report 10220228 (Version 2)
Quarter: 2014Q2

REPORT INFORMATION
  Report Type: Report from Study
  Country: DE (occurrence: DE)
  Receive Date: 20140606
  Receipt Date: 20140618
  Transmission Date: 20141212
  Serious: Yes (Hospitalization)
  Sender: FDA-Public Use
  Company Number: DE-AMGEN-DEUCT2014041963

PATIENT
  Age: 58 Year
  Sex: Male
  Weight: 108 kg

DRUGS (4)
  1. ETANERCEPT [Suspect]
     Indication: PSORIATIC ARTHROPATHY
     Dosage: 50 MG, QWK
     Route: 065
     Dates: start: 201310
  2. PRADAXA [Concomitant]
     Indication: ANTICOAGULANT THERAPY
     Dosage: 10 MG, UNK
     Route: 048
     Dates: start: 201206
  3. PREDNISOLON                        /00016201/ [Concomitant]
     Indication: PSORIATIC ARTHROPATHY
     Dosage: 5 MG, UNK
     Route: 048
     Dates: start: 201302
  4. METEX                              /00113802/ [Concomitant]
     Indication: PSORIATIC ARTHROPATHY
     Dosage: 15 MG, UNK
     Route: 058
     Dates: start: 201311

REACTIONS (1)
  - Asthenia [Recovered/Resolved]
